FAERS Safety Report 23419153 (Version 1)
Quarter: 2024Q1

REPORT INFORMATION
  Report Type: Spontaneous
  Country: FR (occurrence: None)
  Receive Date: 20240118
  Receipt Date: 20240118
  Transmission Date: 20240409
  Serious: Yes (Other)
  Sender: FDA-Public Use
  Company Number: 2023A290221

PATIENT
  Age: 23376 Day
  Sex: Male
  Weight: 94 kg

DRUGS (6)
  1. DAPAGLIFLOZIN [Suspect]
     Active Substance: DAPAGLIFLOZIN
     Indication: Diabetes mellitus
     Route: 048
     Dates: start: 20230706, end: 20230809
  2. IRBESARTAN [Concomitant]
     Active Substance: IRBESARTAN
     Indication: Hypertension
     Dates: start: 200909
  3. METFORMIN HYDROCHLORIDE [Concomitant]
     Active Substance: METFORMIN HYDROCHLORIDE
     Indication: Diabetes mellitus
     Dates: start: 200902
  4. SIMVASTATIN [Concomitant]
     Active Substance: SIMVASTATIN
     Indication: Dyslipidaemia
     Dates: start: 200902
  5. ACETAMINOPHEN [Concomitant]
     Active Substance: ACETAMINOPHEN
     Indication: Headache
     Dates: start: 201307
  6. CODEINE [Concomitant]
     Active Substance: CODEINE
     Indication: Headache
     Dates: start: 201307

REACTIONS (4)
  - Orchitis [Recovered/Resolved]
  - Urinary tract infection [Recovering/Resolving]
  - Prostatitis [Recovering/Resolving]
  - Hydrocele [Unknown]

NARRATIVE: CASE EVENT DATE: 20230809
